FAERS Safety Report 4822869-9 (Version None)
Quarter: 2005Q4

REPORT INFORMATION
  Report Type: 
  Country: None (occurrence: None)
  Receive Date: 20051107
  Receipt Date: 20051107
  Transmission Date: 20060501
  Serious: Yes (Hospitalization)
  Sender: FDA-Public Use
  Company Number: None

PATIENT
  Age: 77 Year
  Sex: Male

DRUGS (1)
  1. REOPRO [Suspect]
     Indication: CORONARY ANGIOPLASTY
     Dosage: 9.2 ML -18.4 MG-  1 DOSE IV BOLUS : 9MG/250ML  X 12 HOURS  IV DRIP
     Route: 040
     Dates: start: 20050928, end: 20050928

REACTIONS (3)
  - GINGIVAL BLEEDING [None]
  - HAEMATURIA [None]
  - THROMBOCYTOPENIA [None]
